FAERS Safety Report 7609759-3 (Version None)
Quarter: 2011Q3

REPORT INFORMATION
  Report Type: 
  Country: None (occurrence: None)
  Receive Date: 20110714
  Receipt Date: 20110704
  Transmission Date: 20111222
  Serious: Yes (Hospitalization)
  Sender: FDA-Public Use
  Company Number: AR-ABBOTT-11P-007-0836242-00

PATIENT
  Sex: Female
  Weight: 39.6 kg

DRUGS (2)
  1. DARUNAVIR ETHANOLATE [Concomitant]
     Indication: HIV INFECTION
     Route: 048
     Dates: start: 20110330, end: 20110703
  2. RITONAVIR [Suspect]
     Indication: HIV INFECTION
     Route: 048
     Dates: start: 20110330, end: 20110703

REACTIONS (3)
  - ABDOMINAL PAIN [None]
  - SOMNOLENCE [None]
  - SUICIDE ATTEMPT [None]
